FAERS Safety Report 5128062-7 (Version None)
Quarter: 2006Q4

REPORT INFORMATION
  Report Type: 
  Country: None (occurrence: None)
  Receive Date: 20061010
  Receipt Date: 20060927
  Transmission Date: 20070319
  Serious: No
  Sender: FDA-Public Use
  Company Number: 2006-148507-NL

PATIENT
  Age: 15 Year
  Sex: Male

DRUGS (2)
  1. VECURONIUM BROMIDE [Suspect]
     Indication: HYPOTONIA
     Dosage: 4 MG QD INTRAVENOUS (NOS)
     Route: 042
     Dates: start: 20060914, end: 20060914
  2. VECURONIUM BROMIDE [Suspect]
     Indication: INTUBATION
     Dosage: 4 MG QD INTRAVENOUS (NOS)
     Route: 042
     Dates: start: 20060914, end: 20060914

REACTIONS (2)
  - BRONCHOSPASM [None]
  - EYELID OEDEMA [None]
